FAERS Safety Report 8298303-6 (Version None)
Quarter: 2012Q2

REPORT INFORMATION
  Report Type: 
  Country: None (occurrence: None)
  Receive Date: 20120419
  Receipt Date: 20120412
  Transmission Date: 20120825
  Serious: Yes (Other)
  Sender: FDA-Public Use
  Company Number: MX-ROCHE-1059901

PATIENT
  Sex: Female

DRUGS (3)
  1. LUCENTIS [Suspect]
     Indication: MACULAR DEGENERATION
     Route: 050
  2. ACTONEL [Concomitant]
     Indication: OSTEOPOROSIS
  3. NORVASC [Concomitant]
     Indication: HYPERTENSION
     Dates: start: 20020101

REACTIONS (1)
  - MACULAR OEDEMA [None]
